FAERS Safety Report 22354752 (Version 2)
Quarter: 2023Q2

REPORT INFORMATION
  Report Type: Spontaneous
  Country: US (occurrence: US)
  Receive Date: 20230523
  Receipt Date: 20230621
  Transmission Date: 20230722
  Serious: Yes (Other)
  Sender: FDA-Public Use
  Company Number: US-BAYER-2023A067480

PATIENT
  Age: 31 Year
  Sex: Female
  Weight: 54.422 kg

DRUGS (1)
  1. KYLEENA [Suspect]
     Active Substance: LEVONORGESTREL
     Indication: Contraception
     Dosage: 17.5?G/DAY
     Route: 015
     Dates: start: 20220916, end: 20230601

REACTIONS (3)
  - Pregnancy with contraceptive device [None]
  - Abortion spontaneous [Unknown]
  - Drug ineffective [None]
